FAERS Safety Report 4435143-X (Version None)
Quarter: 2004Q3

REPORT INFORMATION
  Report Type: 
  Country: None (occurrence: None)
  Receive Date: 20040827
  Receipt Date: 20040428
  Transmission Date: 20050211
  Serious: Yes (Other)
  Sender: FDA-Public Use
  Company Number: FR-ROCHE-365958

PATIENT
  Sex: Female

DRUGS (2)
  1. ROCEPHIN [Suspect]
     Indication: SINUSITIS
     Dates: start: 20031126, end: 20031127
  2. SOLU-MEDROL [Concomitant]
     Indication: SINUSITIS
     Dosage: DRUG REPORTED AS: SOLUMEDROL 40.
     Dates: start: 20031126, end: 20031127

REACTIONS (2)
  - INTRA-UTERINE DEATH [None]
  - MATERNAL DRUGS AFFECTING FOETUS [None]
